FAERS Safety Report 14481188 (Version 2)
Quarter: 2018Q1

REPORT INFORMATION
  Report Type: Spontaneous
  Country: IT (occurrence: IT)
  Receive Date: 20180202
  Receipt Date: 20180206
  Transmission Date: 20180509
  Serious: No
  Sender: FDA-Public Use
  Company Number: IT-ASTRAZENECA-2018SE09956

PATIENT
  Age: 4 Year
  Sex: Female

DRUGS (3)
  1. PROPOFOL. [Suspect]
     Active Substance: PROPOFOL
     Indication: SEDATION
     Route: 042
     Dates: start: 20180111, end: 20180112
  2. OSIMERTINIB. [Suspect]
     Active Substance: OSIMERTINIB
     Route: 065
  3. GEFITINIB. [Suspect]
     Active Substance: GEFITINIB
     Route: 065

REACTIONS (1)
  - Chromaturia [Recovered/Resolved]

NARRATIVE: CASE EVENT DATE: 20180112
